FAERS Safety Report 8504842-2 (Version None)
Quarter: 2012Q2

REPORT INFORMATION
  Report Type: 
  Country: None (occurrence: None)
  Receive Date: 20120405
  Receipt Date: 20100824
  Transmission Date: 20120825
  Serious: Yes (Other)
  Sender: FDA-Public Use
  Company Number: PHHY2010US56355

PATIENT
  Age: 71 Year
  Sex: Male

DRUGS (4)
  1. RECLAST [Suspect]
     Dosage: INJECTION NOS
     Dates: start: 20100813
  2. ACETAMINOPHEN [Concomitant]
  3. PREDNISONE TAB [Concomitant]
  4. ANTIBIOTICS (NO INGREDIENTS/SUBSTANCES) [Concomitant]

REACTIONS (8)
  - PAIN IN EXTREMITY [None]
  - NECK PAIN [None]
  - ARTHRALGIA [None]
  - CONDITION AGGRAVATED [None]
  - ARTHRITIS [None]
  - QUALITY OF LIFE DECREASED [None]
  - OEDEMA PERIPHERAL [None]
  - INFLUENZA LIKE ILLNESS [None]
